FAERS Safety Report 25201865 (Version 4)
Quarter: 2025Q2

REPORT INFORMATION
  Report Type: Report from Study
  Country: US (occurrence: US)
  Receive Date: 20250416
  Receipt Date: 20250527
  Transmission Date: 20250717
  Serious: Yes (Hospitalization, Other)
  Sender: SUNOVION
  Company Number: US-SUMITOMO PHARMA SWITZERLAND GMBH-2025SPA003442

PATIENT

DRUGS (1)
  1. ORGOVYX [Suspect]
     Active Substance: RELUGOLIX
     Indication: Prostate cancer
     Dosage: 120 MG, QD
     Route: 048
     Dates: start: 20250218

REACTIONS (7)
  - Haematuria [Unknown]
  - Abdominal pain [Unknown]
  - Neuralgia [Unknown]
  - Bladder disorder [Unknown]
  - Arthralgia [Unknown]
  - Diarrhoea [Unknown]
  - Incorrect dose administered [Unknown]
